FAERS Safety Report 8829333 (Version 2)
Quarter: 2012Q4

REPORT INFORMATION
  Report Type: 
  Country: GB (occurrence: US)
  Receive Date: 20121008
  Receipt Date: 20121228
  Transmission Date: 20130627
  Serious: Yes (Other)
  Sender: FDA-Public Use
  Company Number: US-ASTRAZENECA-2012SE75608

PATIENT
  Age: 61 Year
  Sex: Female

DRUGS (5)
  1. CRESTOR [Suspect]
     Route: 048
  2. PRILOSEC [Suspect]
     Route: 048
  3. PREDNISONE [Concomitant]
  4. SULFAMETHOXAZOLE-TMP [Concomitant]
  5. ULTRAM [Concomitant]

REACTIONS (2)
  - Carpal tunnel syndrome [Unknown]
  - Drug hypersensitivity [Unknown]
